FAERS Safety Report 4983155-X (Version None)
Quarter: 2006Q2

REPORT INFORMATION
  Report Type: 
  Country: None (occurrence: None)
  Receive Date: 20060426
  Receipt Date: 20050712
  Transmission Date: 20061013
  Serious: Yes (Hospitalization)
  Sender: FDA-Public Use
  Company Number: 2005SE04045

PATIENT
  Age: 26063 Day
  Sex: Female
  Weight: 78 kg

DRUGS (24)
  1. TCV-116 [Suspect]
     Indication: DIABETIC NEPHROPATHY
     Route: 048
     Dates: start: 20040817, end: 20050705
  2. BASEN [Concomitant]
     Indication: DIABETES MELLITUS NON-INSULIN-DEPENDENT
     Route: 048
  3. NICARPINE [Concomitant]
     Indication: ESSENTIAL HYPERTENSION
     Route: 048
  4. MEDIPEACE [Concomitant]
     Indication: INSOMNIA
     Route: 048
  5. NAPROXEN [Concomitant]
     Indication: SCIATICA
     Route: 048
  6. ULCERLMIN [Concomitant]
     Indication: PROPHYLAXIS
     Route: 048
  7. MEVALOTIN [Concomitant]
     Indication: HYPERLIPIDAEMIA
     Route: 048
  8. LASIX [Concomitant]
     Indication: PROPHYLAXIS
     Route: 048
     Dates: end: 20050516
  9. LASIX [Concomitant]
     Route: 048
     Dates: start: 20050517, end: 20050523
  10. LASIX [Concomitant]
     Route: 048
     Dates: start: 20050524
  11. MS(CATAPLASMATA3-14) [Concomitant]
     Indication: SCIATICA
     Route: 062
  12. HAPSATAR [Concomitant]
     Indication: SCIATICA
     Route: 062
  13. CEREKINON [Concomitant]
     Indication: GASTRITIS
     Route: 048
     Dates: start: 20040823
  14. SELBEX [Concomitant]
     Indication: GASTRITIS
     Route: 048
     Dates: start: 20040823
  15. NOVOLIN N [Concomitant]
     Indication: DIABETES MELLITUS NON-INSULIN-DEPENDENT
     Route: 042
     Dates: end: 20041206
  16. NOVOLIN N [Concomitant]
     Route: 042
     Dates: start: 20041207, end: 20041228
  17. NOVOLIN N [Concomitant]
     Route: 042
     Dates: start: 20041229, end: 20050131
  18. NOVOLIN N [Concomitant]
     Route: 042
     Dates: start: 20050201, end: 20050523
  19. NOVOLIN N [Concomitant]
     Route: 042
     Dates: start: 20050524
  20. ALLOTOP-L [Concomitant]
     Indication: ESSENTIAL HYPERTENSION
     Route: 048
  21. SIFUNARL [Concomitant]
     Indication: PRURITUS
     Route: 062
  22. RINDERON-VG [Concomitant]
     Indication: PRURITUS
     Route: 062
  23. JUVELA [Concomitant]
     Indication: HYPERKERATOSIS
     Route: 062
  24. PROCTOSEDYL OINTMENT(HYDROCORTISONE/FRADIOMYCIN COMBINED DRUG) [Concomitant]
     Indication: HAEMORRHOIDS
     Route: 062

REACTIONS (9)
  - ANGIONEUROTIC OEDEMA [None]
  - ARRHYTHMIA [None]
  - BLOOD PRESSURE INCREASED [None]
  - CARDIAC FAILURE [None]
  - CARDIOMEGALY [None]
  - CYSTITIS [None]
  - ECZEMA [None]
  - PLEURAL EFFUSION [None]
  - PULMONARY EMBOLISM [None]
